FAERS Safety Report 4782844-X (Version None)
Quarter: 2005Q3

REPORT INFORMATION
  Report Type: 
  Country: None (occurrence: None)
  Receive Date: 20050914
  Receipt Date: 20050603
  Transmission Date: 20060218
  Serious: Yes (Death, Hospitalization)
  Sender: FDA-Public Use
  Company Number: 163-20785-05060061

PATIENT
  Age: 66 Year
  Sex: Male

DRUGS (5)
  1. THALOMID [Suspect]
     Indication: RENAL CELL CARCINOMA STAGE UNSPECIFIED
     Dosage: 100-400MG, QHS, ORAL
     Route: 048
     Dates: start: 20050210, end: 20050301
  2. INTERLEUKIN-2 (INTERLEUKIN-2) (UNKNOWN) [Suspect]
  3. HYDROCODONE APAP (VICODIN) [Concomitant]
  4. SENNA-S (SENNA) [Concomitant]
  5. PROTONIX [Concomitant]

REACTIONS (2)
  - DEATH [None]
  - PULMONARY OEDEMA [None]
